FAERS Safety Report 10289515 (Version 7)
Quarter: 2015Q1

REPORT INFORMATION
  Report Type: Report from Study
  Country: GB (occurrence: GB)
  Receive Date: 20140710
  Receipt Date: 20150128
  Transmission Date: 20150720
  Serious: Yes (Death, Hospitalization)
  Sender: FDA-Public Use
  Company Number: PHHO2014GB009279

PATIENT
  Age: 29 Year
  Sex: Male
  Weight: 62.1 kg

DRUGS (19)
  1. LDK378 [Suspect]
     Active Substance: CERITINIB
     Indication: NON-SMALL CELL LUNG CANCER METASTATIC
     Dosage: 750 MG, QD
     Route: 048
     Dates: start: 20140424, end: 20140622
  2. METOCLOPRAMIDE. [Concomitant]
     Active Substance: METOCLOPRAMIDE
     Indication: NAUSEA
     Dosage: 10 MG, TID
     Route: 065
  3. DEXAMETHASONE. [Suspect]
     Active Substance: DEXAMETHASONE
     Dosage: 8 MG, DAILY
     Route: 065
     Dates: start: 20140624, end: 20140626
  4. DEXAMETHASONE. [Suspect]
     Active Substance: DEXAMETHASONE
     Dosage: 4 MG, DAILY
     Route: 065
     Dates: start: 20140627, end: 20140630
  5. DEXAMETHASONE. [Suspect]
     Active Substance: DEXAMETHASONE
     Dosage: 2 MG, DAILY
     Route: 065
     Dates: start: 20140701
  6. RANITIDINE [Concomitant]
     Active Substance: RANITIDINE\RANITIDINE HYDROCHLORIDE
     Indication: ABDOMINAL PAIN UPPER
     Dosage: 300 MG, BID
     Route: 065
     Dates: start: 20140617
  7. DOCETAXEL. [Suspect]
     Active Substance: DOCETAXEL
     Indication: NON-SMALL CELL LUNG CANCER METASTATIC
     Dosage: 150 MG, QW3
     Route: 042
     Dates: start: 20140328
  8. DEXAMETHASONE. [Suspect]
     Active Substance: DEXAMETHASONE
     Dosage: 6 MG, BID
     Route: 065
     Dates: start: 20140623, end: 20140623
  9. NYSTATIN. [Concomitant]
     Active Substance: NYSTATIN
     Indication: ORAL CANDIDIASIS
     Dosage: 1 MG, QD
     Route: 065
     Dates: start: 20140617
  10. TESTOGEL [Suspect]
     Active Substance: TESTOSTERONE
     Indication: PRODUCT USED FOR UNKNOWN INDICATION
     Dosage: UNK
     Route: 065
  11. DENOSUMAB [Concomitant]
     Active Substance: DENOSUMAB
     Indication: METASTASES TO BONE
     Dosage: 12 MG, QM
     Route: 058
     Dates: start: 20140515
  12. DEXAMETHASONE. [Suspect]
     Active Substance: DEXAMETHASONE
     Indication: RADIOTHERAPY TO BONE
     Dosage: 8 MG, BID
     Route: 065
     Dates: start: 20140611, end: 20140622
  13. DICYCLOVERINE [Concomitant]
     Indication: ABDOMINAL PAIN UPPER
     Dosage: 10 MG, BID
     Route: 048
     Dates: start: 20140510, end: 20140628
  14. MORPHINE SULFATE/NALTREXONE HYDROCHLORIDE [Concomitant]
     Active Substance: MORPHINE SULFATE\NALTREXONE HYDROCHLORIDE
     Indication: PAIN
     Dosage: 60 MG, BID
     Route: 065
     Dates: end: 20140622
  15. SEVREDOL [Concomitant]
     Active Substance: MORPHINE
     Indication: PAIN
     Dosage: 20 MG, PRN
     Route: 065
  16. CALCICHEW [Concomitant]
     Active Substance: CALCIUM CARBONATE
     Indication: METASTASES TO BONE
     Dosage: 1 DF, QD (DAILY)
     Route: 065
  17. MORPHINE SULFATE/NALTREXONE HYDROCHLORIDE [Concomitant]
     Active Substance: MORPHINE SULFATE\NALTREXONE HYDROCHLORIDE
     Dosage: 50 MG, BID
     Route: 065
     Dates: start: 20140622
  18. CALCICHEW [Concomitant]
     Active Substance: CALCIUM CARBONATE
     Indication: RADIOTHERAPY
  19. DALTEPARIN [Concomitant]
     Active Substance: DALTEPARIN
     Indication: PROPHYLAXIS
     Dosage: 5000 U, QD (DAILY)
     Route: 065

REACTIONS (3)
  - Hyponatraemia [Recovered/Resolved]
  - Hyperglycaemia [Recovered/Resolved]
  - Partial seizures [Fatal]

NARRATIVE: CASE EVENT DATE: 20140622
